FAERS Safety Report 9776999 (Version 2)
Quarter: 2014Q1

REPORT INFORMATION
  Report Type: Spontaneous
  Country: US (occurrence: US)
  Receive Date: 20131221
  Receipt Date: 20140311
  Transmission Date: 20141002
  Serious: No
  Sender: FDA-Public Use
  Company Number: US-B.I. PHARMACEUTICALS,INC./RIDGEFIELD-2013-BI-41335BP

PATIENT
  Age: 61 Year
  Sex: Female
  Weight: 75 kg

DRUGS (3)
  1. COMBIVENT [Suspect]
     Indication: SARCOIDOSIS
     Dosage: STRENGTH : 20 MCG/ 100 MCG
     Route: 055
     Dates: start: 201310
  2. DUONEB [Concomitant]
     Indication: SARCOIDOSIS
     Dosage: FORMULATION: INHALATION SOLUTION, STRENGTH: 2.5ML;
     Route: 055
  3. SPIRIVA [Concomitant]
     Indication: SARCOIDOSIS
     Dosage: 18 MCG
     Route: 055
     Dates: start: 2010

REACTIONS (4)
  - Prescribed overdose [Not Recovered/Not Resolved]
  - Drug ineffective [Not Recovered/Not Resolved]
  - Drug ineffective [Unknown]
  - Off label use [Unknown]
